FAERS Safety Report 19943412 (Version 2)
Quarter: 2021Q4

REPORT INFORMATION
  Report Type: Spontaneous
  Country: US (occurrence: US)
  Receive Date: 20211011
  Receipt Date: 20211221
  Transmission Date: 20220303
  Serious: Yes (Other)
  Sender: FDA-Public Use
  Company Number: US-PFIZER INC-202101287997

PATIENT
  Age: 56 Year
  Sex: Female
  Weight: 54.43 kg

DRUGS (1)
  1. CHANTIX [Suspect]
     Active Substance: VARENICLINE TARTRATE
     Indication: Smoking cessation therapy
     Dosage: REGULAR BLISTER PACK DOSAGE, THEN GOT IN THE BOTTLE, LITTLE BLUE TABLETS
     Dates: start: 202103, end: 202107

REACTIONS (3)
  - Squamous cell carcinoma [Recovered/Resolved]
  - Poor quality product administered [Recovered/Resolved]
  - Recalled product administered [Recovered/Resolved]

NARRATIVE: CASE EVENT DATE: 20210301
